FAERS Safety Report 5057512-X (Version None)
Quarter: 2006Q3

REPORT INFORMATION
  Report Type: 
  Country: None (occurrence: None)
  Receive Date: 20060721
  Receipt Date: 20051101
  Transmission Date: 20061208
  Serious: No
  Sender: FDA-Public Use
  Company Number: US-GLAXOSMITHKLINE-A0580505A

PATIENT
  Age: 68 Year
  Sex: Female
  Weight: 127.3 kg

DRUGS (11)
  1. AVANDIA [Suspect]
     Dosage: 4MG PER DAY
     Route: 048
  2. ZOLOFT [Concomitant]
  3. ZETIA [Concomitant]
  4. LOPRESSOR [Concomitant]
  5. ZOCOR [Concomitant]
  6. COZAAR [Concomitant]
  7. COUMADIN [Concomitant]
  8. ROGAINE [Concomitant]
  9. LASIX [Concomitant]
  10. XANAX [Concomitant]
  11. VITAMINS [Concomitant]

REACTIONS (1)
  - WEIGHT LOSS POOR [None]
